FAERS Safety Report 9328961 (Version 1)
Quarter: 2013Q2

REPORT INFORMATION
  Report Type: Spontaneous
  Country: KR (occurrence: KR)
  Receive Date: 20130604
  Receipt Date: 20130604
  Transmission Date: 20140414
  Serious: Yes (Hospitalization, Other)
  Sender: FDA-Public Use
  Company Number: KR-ELI_LILLY_AND_COMPANY-KR201306000383

PATIENT
  Sex: Male

DRUGS (2)
  1. HUMALOG 25% LISPRO, 75% NPL [Suspect]
     Indication: TYPE 2 DIABETES MELLITUS
     Dosage: 10 IU, EACH MORNING
     Route: 058
     Dates: start: 20121218
  2. HUMALOG 25% LISPRO, 75% NPL [Suspect]
     Dosage: 20 IU, EACH EVENING
     Route: 058
     Dates: start: 20121218

REACTIONS (5)
  - Lung cancer metastatic [Unknown]
  - Constipation [Unknown]
  - Blood glucose abnormal [Unknown]
  - Lung cancer metastatic [Unknown]
  - Hepatocellular carcinoma [Unknown]
